FAERS Safety Report 4483933-X (Version None)
Quarter: 2004Q4

REPORT INFORMATION
  Report Type: 
  Country: None (occurrence: None)
  Receive Date: 20041021
  Receipt Date: 20041013
  Transmission Date: 20050328
  Serious: Yes (Other)
  Sender: FDA-Public Use
  Company Number: 2004238989US

PATIENT
  Sex: Female

DRUGS (1)
  1. BEXTRA [Suspect]
     Indication: BACK DISORDER
     Dosage: SEE IMAGE
     Dates: start: 20040101

REACTIONS (3)
  - COLONIC POLYP [None]
  - HAEMATOCHEZIA [None]
  - RECTAL HAEMORRHAGE [None]
